FAERS Safety Report 7926299 (Version 3)
Quarter: 2013Q2

REPORT INFORMATION
  Report Type: Spontaneous
  Country: US (occurrence: US)
  Receive Date: 20110502
  Receipt Date: 20130607
  Transmission Date: 20140414
  Serious: Yes (Other)
  Sender: FDA-Public Use
  Company Number: US-ASTRAZENECA-2010SE58885

PATIENT
  Age: 52 Year
  Sex: Female

DRUGS (4)
  1. NEXIUM [Suspect]
     Route: 048
  2. PRILOSEC OTC [Suspect]
     Route: 048
  3. OMEPRAZOLE [Concomitant]
     Route: 048
  4. RANITIDINE [Concomitant]

REACTIONS (5)
  - Wrist fracture [Unknown]
  - Aphagia [Unknown]
  - Dyspepsia [Unknown]
  - Drug dose omission [Unknown]
  - Drug ineffective [Unknown]
